FAERS Safety Report 9476443 (Version 1)
Quarter: 2013Q3

REPORT INFORMATION
  Report Type: Spontaneous
  Country: CN (occurrence: CN)
  Receive Date: 20130826
  Receipt Date: 20130826
  Transmission Date: 20140515
  Serious: Yes (Other)
  Sender: FDA-Public Use
  Company Number: CN-PFIZER INC-2013238354

PATIENT
  Age: 50 Year
  Sex: Female

DRUGS (4)
  1. ADRIAMYCIN [Suspect]
     Indication: BREAST CANCER
     Dosage: 70 MG, DAY 1
     Route: 042
     Dates: start: 20010601
  2. CYCLOPHOSPHAMIDE [Concomitant]
     Indication: BREAST CANCER
     Dosage: 1100 MG, DAY 1
     Route: 042
     Dates: start: 20010601
  3. FLUOROURACIL [Concomitant]
     Indication: BREAST CANCER
     Dosage: 1125 MG, INTO 5% GLUCOSE
     Route: 042
     Dates: start: 20010601
  4. GRANISETRON [Concomitant]
     Indication: PROPHYLAXIS OF NAUSEA AND VOMITING
     Dosage: 3 MG + 0.9% SODIUM CHLORIDE INJECTION 20 ML
     Route: 042
     Dates: start: 20010625

REACTIONS (1)
  - Anaphylactic shock [Recovered/Resolved]
